FAERS Safety Report 20033242 (Version 2)
Quarter: 2021Q4

REPORT INFORMATION
  Report Type: Spontaneous
  Country: DE (occurrence: None)
  Receive Date: 20211104
  Receipt Date: 20211105
  Transmission Date: 20220304
  Serious: No
  Sender: FDA-Public Use
  Company Number: DE-Orion Corporation ORION PHARMA-ENTC2021-0282

PATIENT
  Age: 72 Year
  Sex: Male

DRUGS (8)
  1. STALEVO [Interacting]
     Active Substance: CARBIDOPA\ENTACAPONE\LEVODOPA
     Indication: Parkinson^s disease
     Dosage: STRENGTH 100 MG
     Route: 065
     Dates: start: 201806
  2. STALEVO [Interacting]
     Active Substance: CARBIDOPA\ENTACAPONE\LEVODOPA
     Route: 065
  3. STALEVO [Interacting]
     Active Substance: CARBIDOPA\ENTACAPONE\LEVODOPA
     Dosage: 150/37.5/200 MG
     Route: 065
  4. IRON [Interacting]
     Active Substance: IRON
     Indication: Anaemia
     Route: 065
     Dates: start: 2018
  5. RIVASTIGMINE [Concomitant]
     Active Substance: RIVASTIGMINE
     Indication: Parkinson^s disease
     Dosage: STRENGTH: 8 MG/ 24 HOURS
     Route: 062
  6. VITAMIN B12 [Concomitant]
     Active Substance: CYANOCOBALAMIN
     Indication: Anaemia
     Dosage: DAILY DOSE: 0/0/1
     Route: 065
     Dates: start: 20210401
  7. APOMORPHINE [Concomitant]
     Active Substance: APOMORPHINE
     Indication: Parkinson^s disease
     Route: 065
  8. FERROUS GLUCONATE [Concomitant]
     Active Substance: FERROUS GLUCONATE
     Indication: Anaemia
     Dosage: DAILY DOSE: 0/0/1?ALTERED TO ALLOW FOR A 2 HOUR INTERVAL AFTER THE STALEVO INTAKE
     Route: 065
     Dates: start: 20210401

REACTIONS (3)
  - Drug interaction [Unknown]
  - Therapeutic response decreased [Unknown]
  - Hallucination [Not Recovered/Not Resolved]

NARRATIVE: CASE EVENT DATE: 20200601
